FAERS Safety Report 5854690-7 (Version None)
Quarter: 2008Q3

REPORT INFORMATION
  Report Type: 
  Country: None (occurrence: None)
  Receive Date: 20080822
  Receipt Date: 20071127
  Transmission Date: 20090109
  Serious: No
  Sender: FDA-Public Use
  Company Number: US-ABBOTT-07P-163-0426614-00

PATIENT
  Sex: Female
  Weight: 74.91 kg

DRUGS (3)
  1. SYNTHROID [Suspect]
     Indication: HYPOTHYROIDISM
     Route: 048
     Dates: start: 20020101, end: 20050101
  2. SYNTHROID [Suspect]
     Dosage: DYE-FREE
     Route: 048
     Dates: start: 20050101, end: 20071001
  3. SYNTHROID [Suspect]
     Route: 048
     Dates: start: 20071001

REACTIONS (1)
  - RASH [None]
